FAERS Safety Report 18405316 (Version 2)
Quarter: 2020Q4

REPORT INFORMATION
  Report Type: Spontaneous
  Country: US (occurrence: US)
  Receive Date: 20201020
  Receipt Date: 20201109
  Transmission Date: 20210114
  Serious: No
  Sender: FDA-Public Use
  Company Number: US-PFIZER INC-2020328340

PATIENT
  Age: 71 Year
  Sex: Female
  Weight: 77.11 kg

DRUGS (3)
  1. IBRANCE [Suspect]
     Active Substance: PALBOCICLIB
     Indication: BREAST CANCER METASTATIC
     Dosage: 125 MG, CYCLIC (EVERY DAY FOR THREE WEEKS AND THEN OFF FOR A WEEK)
     Dates: start: 2020, end: 202008
  2. IBRANCE [Suspect]
     Active Substance: PALBOCICLIB
     Dosage: 125 MG, CYCLIC (EVERY DAY FOR THREE WEEKS AND THEN OFF FOR A WEEK)
     Dates: start: 202009, end: 20201006
  3. FASLODEX [Concomitant]
     Active Substance: FULVESTRANT
     Dosage: UNK, MONTHLY (TWO SHOTS ONCE A MONTH)

REACTIONS (3)
  - Tooth abscess [Unknown]
  - Dysphonia [Unknown]
  - White blood cell count decreased [Recovering/Resolving]

NARRATIVE: CASE EVENT DATE: 2020
